FAERS Safety Report 9435476 (Version 2)
Quarter: 2013Q3

REPORT INFORMATION
  Report Type: Spontaneous
  Country: DE (occurrence: DE)
  Receive Date: 20130801
  Receipt Date: 20130812
  Transmission Date: 20140515
  Serious: Yes (Life-Threatening, Hospitalization)
  Sender: FDA-Public Use
  Company Number: DE-GLAXOSMITHKLINE-D0080653A

PATIENT
  Age: 86 Year
  Sex: Male

DRUGS (4)
  1. ARIXTRA [Suspect]
     Indication: THROMBOPHLEBITIS
     Route: 058
     Dates: start: 20130719, end: 20130723
  2. HYDROCORTISONE [Concomitant]
     Dosage: 10MG PER DAY
     Route: 048
  3. L-THYROXIN-HENNING [Concomitant]
     Dosage: 75UG PER DAY
     Route: 048
  4. CORVATON RETARD [Concomitant]
     Indication: PRINZMETAL ANGINA
     Dosage: 8MG PER DAY
     Route: 048

REACTIONS (3)
  - Diarrhoea [Recovered/Resolved]
  - Vomiting [Recovered/Resolved]
  - Decreased appetite [Recovered/Resolved]
